FAERS Safety Report 24558432 (Version 4)
Quarter: 2024Q4

REPORT INFORMATION
  Report Type: Report from Study
  Country: US (occurrence: US)
  Receive Date: 20241029
  Receipt Date: 20241226
  Transmission Date: 20250115
  Serious: Yes (Other)
  Sender: INSMED
  Company Number: US-INSMED, INC.-2024-03748-US

PATIENT
  Sex: Female

DRUGS (2)
  1. ARIKAYCE [Suspect]
     Active Substance: AMIKACIN
     Indication: Mycobacterium avium complex infection
     Dosage: 590 MILLIGRAM, QD
     Route: 055
     Dates: start: 20240916, end: 20241104
  2. ALBUTEROL [Concomitant]
     Active Substance: ALBUTEROL
     Indication: Product used for unknown indication
     Dosage: UNK, UNK
     Route: 055
     Dates: start: 2024, end: 20241104

REACTIONS (19)
  - Dehydration [Recovering/Resolving]
  - Loss of consciousness [Unknown]
  - Asthenia [Recovering/Resolving]
  - Sputum retention [Unknown]
  - Increased viscosity of bronchial secretion [Unknown]
  - Drug intolerance [Not Recovered/Not Resolved]
  - Sputum discoloured [Unknown]
  - Salivary hypersecretion [Recovered/Resolved]
  - Sputum increased [Not Recovered/Not Resolved]
  - Retching [Unknown]
  - Cough [Not Recovered/Not Resolved]
  - Dysphonia [Recovering/Resolving]
  - Aphonia [Recovering/Resolving]
  - Oral discomfort [Unknown]
  - Fatigue [Not Recovered/Not Resolved]
  - Productive cough [Unknown]
  - Oropharyngeal pain [Recovered/Resolved]
  - Illness [Unknown]
  - Product dose omission issue [Unknown]

NARRATIVE: CASE EVENT DATE: 20240101
